FAERS Safety Report 12687454 (Version 2)
Quarter: 2016Q3

REPORT INFORMATION
  Report Type: Spontaneous
  Country: US (occurrence: US)
  Receive Date: 20160825
  Receipt Date: 20160908
  Transmission Date: 20161109
  Serious: Yes (Other)
  Sender: FDA-Public Use
  Company Number: GXBR2016US002643

PATIENT
  Age: 60 Year
  Sex: Female
  Weight: 58.96 kg

DRUGS (2)
  1. HYDROXYCHLOROQUINE SULFATE TABLETS USP [Suspect]
     Active Substance: HYDROXYCHLOROQUINE SULFATE
     Indication: RHEUMATOID ARTHRITIS
     Dosage: 1 DF, QD
     Route: 048
     Dates: start: 201203, end: 201309
  2. IBUPROFEN TABLETS USP [Suspect]
     Active Substance: IBUPROFEN
     Indication: RHEUMATOID ARTHRITIS
     Dosage: UNK DF, UNK
     Route: 065
     Dates: start: 2012, end: 2013

REACTIONS (3)
  - Lymphoma [Recovered/Resolved]
  - Renal impairment [Recovered/Resolved]
  - Nausea [Recovered/Resolved]

NARRATIVE: CASE EVENT DATE: 201309
